FAERS Safety Report 9606944 (Version 1)
Quarter: 2013Q4

REPORT INFORMATION
  Report Type: Spontaneous
  Country: GB (occurrence: GB)
  Receive Date: 20131008
  Receipt Date: 20131008
  Transmission Date: 20140711
  Serious: Yes (Hospitalization)
  Sender: FDA-Public Use
  Company Number: GB-UCBSA-099145

PATIENT
  Age: 50 Year
  Sex: Male

DRUGS (1)
  1. GLYCERYL TRINITRATE [Suspect]
     Indication: ARTHRITIS
     Route: 062
     Dates: start: 20130902, end: 201309

REACTIONS (6)
  - Headache [Recovered/Resolved with Sequelae]
  - Dizziness [Unknown]
  - Muscular weakness [Recovered/Resolved with Sequelae]
  - Nausea [Recovered/Resolved with Sequelae]
  - Tachycardia [Recovered/Resolved with Sequelae]
  - Vomiting [Recovered/Resolved with Sequelae]
